FAERS Safety Report 17934558 (Version 1)
Quarter: 2020Q2

REPORT INFORMATION
  Report Type: Spontaneous
  Country: US (occurrence: US)
  Receive Date: 20200623
  Receipt Date: 20200623
  Transmission Date: 20200714
  Serious: Yes (Other)
  Sender: FDA-Public Use
  Company Number: None

PATIENT
  Age: 48 Year
  Sex: Female
  Weight: 60.75 kg

DRUGS (8)
  1. BUPROPION. [Concomitant]
     Active Substance: BUPROPION
  2. BUPROPION XL 150 MG TABLET (AB3) [Suspect]
     Active Substance: BUPROPION HYDROCHLORIDE
     Indication: DEPRESSION
     Dosage: ?          QUANTITY:1 TABLET(S);?
     Route: 048
     Dates: start: 20200415, end: 20200622
  3. NEUROSTIMULATOR [Concomitant]
  4. POTASSIUM CITRATE. [Concomitant]
     Active Substance: POTASSIUM CITRATE
  5. ADVIL [Concomitant]
     Active Substance: IBUPROFEN
  6. MULTI-VITAMIN [Concomitant]
     Active Substance: .ALPHA.-TOCOPHEROL ACETATE, DL-\ASCORBIC ACID\CYANOCOBALAMIN\FLUORIDE ION\FOLIC ACID\NIACIN\PYRIDOXINE\RIBOFLAVIN\THIAMINE\VITAMIN A\VITAMIN D
  7. COSENTYX [Concomitant]
     Active Substance: SECUKINUMAB
  8. BUPROPION XL 150 MG TABLET (AB3) [Suspect]
     Active Substance: BUPROPION HYDROCHLORIDE
     Indication: NEURALGIA
     Dosage: ?          QUANTITY:1 TABLET(S);?
     Route: 048
     Dates: start: 20200415, end: 20200622

REACTIONS (3)
  - Drug ineffective [None]
  - Pain [None]
  - Product substitution issue [None]

NARRATIVE: CASE EVENT DATE: 20200415
